FAERS Safety Report 25564165 (Version 1)
Quarter: 2025Q3

REPORT INFORMATION
  Report Type: Spontaneous
  Country: US (occurrence: US)
  Receive Date: 20250716
  Receipt Date: 20250716
  Transmission Date: 20251020
  Serious: No
  Sender: NOSTRUM PHARMACEUTICALS LLC
  Company Number: US-NP-2025-100249

PATIENT
  Age: 20 Year
  Sex: Female

DRUGS (5)
  1. VENLAFAXINE [Suspect]
     Active Substance: VENLAFAXINE HYDROCHLORIDE
     Indication: Depression
  2. ARIPIPRAZOLE [Concomitant]
     Active Substance: ARIPIPRAZOLE
     Indication: Psychotic disorder
  3. SERTRALINE [Concomitant]
     Active Substance: SERTRALINE HYDROCHLORIDE
     Indication: Depression
  4. LITHIUM [Concomitant]
     Active Substance: LITHIUM
     Indication: Depression
  5. NEURONTIN [Concomitant]
     Active Substance: GABAPENTIN
     Indication: Depression

REACTIONS (2)
  - Daydreaming [Recovering/Resolving]
  - Condition aggravated [Recovering/Resolving]
